FAERS Safety Report 21381441 (Version 4)
Quarter: 2025Q4

REPORT INFORMATION
  Report Type: Other
  Country: GB (occurrence: GB)
  Receive Date: 20220927
  Receipt Date: 20251209
  Transmission Date: 20260117
  Serious: Yes (Other)
  Sender: LUPIN
  Company Number: GB-MHRA-ADR 27294541

PATIENT
  Age: 29 Year
  Sex: Male

DRUGS (235)
  1. SERTRALINE [Suspect]
     Active Substance: SERTRALINE HYDROCHLORIDE
     Indication: Product used for unknown indication
     Dosage: UNK
     Route: 065
  2. SERTRALINE [Suspect]
     Active Substance: SERTRALINE HYDROCHLORIDE
     Indication: Product used for unknown indication
     Dosage: UNK (CAPSULE, HARD)
     Route: 065
  3. SERTRALINE [Suspect]
     Active Substance: SERTRALINE HYDROCHLORIDE
     Dosage: UNK (CAPSULE, HARD)
     Route: 065
  4. SERTRALINE [Suspect]
     Active Substance: SERTRALINE HYDROCHLORIDE
     Dosage: UNK (CAPSULE, HARD)
     Route: 065
  5. PREGABALIN [Suspect]
     Active Substance: PREGABALIN
     Indication: Product used for unknown indication
     Dosage: UNK
  6. PREGABALIN [Suspect]
     Active Substance: PREGABALIN
     Indication: Product used for unknown indication
     Dosage: UNK
  7. PREGABALIN [Suspect]
     Active Substance: PREGABALIN
     Dosage: UNK, HARD CAPSULE
     Route: 065
  8. PREGABALIN [Suspect]
     Active Substance: PREGABALIN
     Dosage: UNK
     Route: 065
  9. PREGABALIN [Suspect]
     Active Substance: PREGABALIN
     Dosage: UNK
     Route: 065
  10. PREGABALIN [Suspect]
     Active Substance: PREGABALIN
     Dosage: UNK
     Route: 065
  11. PREGABALIN [Suspect]
     Active Substance: PREGABALIN
     Dosage: UNK
     Route: 065
  12. PREGABALIN [Suspect]
     Active Substance: PREGABALIN
     Dosage: UNK
     Route: 065
  13. PREGABALIN [Suspect]
     Active Substance: PREGABALIN
     Dosage: UNK
     Route: 065
  14. PREGABALIN [Suspect]
     Active Substance: PREGABALIN
     Dosage: UNK
     Route: 065
  15. PREGABALIN [Suspect]
     Active Substance: PREGABALIN
     Dosage: UNK
  16. PREGABALIN [Suspect]
     Active Substance: PREGABALIN
     Dosage: UNK
  17. PREGABALIN [Suspect]
     Active Substance: PREGABALIN
     Dosage: UNK, CAPSULE HARD
  18. PREGABALIN [Suspect]
     Active Substance: PREGABALIN
     Dosage: UNK
  19. PREGABALIN [Suspect]
     Active Substance: PREGABALIN
     Dosage: UNK
  20. PREGABALIN [Suspect]
     Active Substance: PREGABALIN
     Dosage: UNK
  21. AMITRIPTYLINE HYDROCHLORIDE [Suspect]
     Active Substance: AMITRIPTYLINE HYDROCHLORIDE
     Indication: Product used for unknown indication
     Dosage: UNK, QD (ORAL LIQUID)
     Dates: start: 2017, end: 2018
  22. AMITRIPTYLINE HYDROCHLORIDE [Suspect]
     Active Substance: AMITRIPTYLINE HYDROCHLORIDE
     Dosage: UNK, LIQUID
  23. AMITRIPTYLINE HYDROCHLORIDE [Suspect]
     Active Substance: AMITRIPTYLINE HYDROCHLORIDE
     Dosage: UNK, LIQUID
  24. AMITRIPTYLINE HYDROCHLORIDE [Suspect]
     Active Substance: AMITRIPTYLINE HYDROCHLORIDE
     Dosage: UNK, LIQUID
  25. AMITRIPTYLINE HYDROCHLORIDE [Suspect]
     Active Substance: AMITRIPTYLINE HYDROCHLORIDE
     Dosage: UNK,
     Route: 065
  26. AMITRIPTYLINE HYDROCHLORIDE [Suspect]
     Active Substance: AMITRIPTYLINE HYDROCHLORIDE
     Dosage: UNK, QD
     Dates: start: 2018, end: 2018
  27. AMITRIPTYLINE HYDROCHLORIDE [Suspect]
     Active Substance: AMITRIPTYLINE HYDROCHLORIDE
     Dosage: UNK
  28. AMITRIPTYLINE HYDROCHLORIDE [Suspect]
     Active Substance: AMITRIPTYLINE HYDROCHLORIDE
     Dosage: UNK
     Route: 065
  29. AMITRIPTYLINE HYDROCHLORIDE [Suspect]
     Active Substance: AMITRIPTYLINE HYDROCHLORIDE
     Dosage: UNK
     Route: 065
  30. AMITRIPTYLINE HYDROCHLORIDE [Suspect]
     Active Substance: AMITRIPTYLINE HYDROCHLORIDE
     Dosage: UNK (ORAL LIQUID)
  31. BOTULINUM TOXIN TYPE A [Suspect]
     Active Substance: BOTULINUM TOXIN TYPE A
     Indication: Product used for unknown indication
     Dosage: 1 MG, QCY (POWDER FOR SOLUTION FOR INJECTION)
  32. BOTULINUM TOXIN TYPE A [Suspect]
     Active Substance: BOTULINUM TOXIN TYPE A
     Dosage: 1 MG, QD (POWDER FOR SOLUTION FOR INJECTION)
     Dates: start: 2017, end: 2018
  33. BOTULINUM TOXIN TYPE A [Suspect]
     Active Substance: BOTULINUM TOXIN TYPE A
     Dosage: 1 MG, QD (SINGLE CYCLICAL) (POWDER FOR SOLUTION FOR INJECTION)
     Dates: start: 2017, end: 2018
  34. BOTULINUM TOXIN TYPE A [Suspect]
     Active Substance: BOTULINUM TOXIN TYPE A
     Dosage: 1 MG, QD, POWDER FOR SOLUTION FOR INJECTION
     Dates: start: 2018, end: 2018
  35. BOTULINUM TOXIN TYPE A [Suspect]
     Active Substance: BOTULINUM TOXIN TYPE A
     Dosage: UNK (POWDER FOR SOLUTION FOR INJECTION)
  36. CYANOCOBALAMIN [Suspect]
     Active Substance: CYANOCOBALAMIN
     Indication: Product used for unknown indication
     Dosage: UNK
     Route: 065
  37. CYANOCOBALAMIN [Suspect]
     Active Substance: CYANOCOBALAMIN
     Indication: Product used for unknown indication
     Dosage: UNK
     Route: 065
  38. CYANOCOBALAMIN [Suspect]
     Active Substance: CYANOCOBALAMIN
     Dosage: UNK
     Route: 065
  39. CYANOCOBALAMIN [Suspect]
     Active Substance: CYANOCOBALAMIN
     Dosage: UNK
     Route: 065
  40. CYANOCOBALAMIN [Suspect]
     Active Substance: CYANOCOBALAMIN
     Dosage: UNK
     Route: 065
  41. CYANOCOBALAMIN [Suspect]
     Active Substance: CYANOCOBALAMIN
     Dosage: UNK
     Route: 065
  42. CYANOCOBALAMIN [Suspect]
     Active Substance: CYANOCOBALAMIN
     Dosage: UNK
     Route: 065
  43. CYANOCOBALAMIN [Suspect]
     Active Substance: CYANOCOBALAMIN
     Dosage: UNK
     Route: 065
  44. CYANOCOBALAMIN [Suspect]
     Active Substance: CYANOCOBALAMIN
     Dosage: UNK
     Route: 065
  45. CYANOCOBALAMIN [Suspect]
     Active Substance: CYANOCOBALAMIN
     Dosage: UNK
     Route: 065
  46. CYANOCOBALAMIN [Suspect]
     Active Substance: CYANOCOBALAMIN
     Dosage: UNK
     Route: 065
  47. CYANOCOBALAMIN [Suspect]
     Active Substance: CYANOCOBALAMIN
     Dosage: UNK
     Route: 065
  48. CYANOCOBALAMIN [Suspect]
     Active Substance: CYANOCOBALAMIN
     Dosage: UNK
     Route: 065
  49. CYANOCOBALAMIN [Suspect]
     Active Substance: CYANOCOBALAMIN
     Dosage: UNK
     Route: 065
  50. CYANOCOBALAMIN [Suspect]
     Active Substance: CYANOCOBALAMIN
     Dosage: UNK
     Route: 065
  51. CYANOCOBALAMIN [Suspect]
     Active Substance: CYANOCOBALAMIN
     Dosage: UNK
     Route: 065
  52. CYANOCOBALAMIN [Suspect]
     Active Substance: CYANOCOBALAMIN
     Dosage: UNK
     Route: 065
  53. CYANOCOBALAMIN [Suspect]
     Active Substance: CYANOCOBALAMIN
     Dosage: UNK
     Route: 065
  54. CYANOCOBALAMIN [Suspect]
     Active Substance: CYANOCOBALAMIN
     Dosage: UNK
     Route: 065
  55. CYANOCOBALAMIN [Suspect]
     Active Substance: CYANOCOBALAMIN
     Dosage: UNK
     Route: 065
  56. DICLOFENAC SODIUM [Suspect]
     Active Substance: DICLOFENAC SODIUM
     Indication: Product used for unknown indication
     Dosage: UNK
     Route: 065
  57. DICLOFENAC SODIUM [Suspect]
     Active Substance: DICLOFENAC SODIUM
     Indication: Product used for unknown indication
     Dosage: UNK
     Route: 065
  58. DICLOFENAC SODIUM [Suspect]
     Active Substance: DICLOFENAC SODIUM
     Dosage: UNK
     Route: 065
  59. DICLOFENAC SODIUM [Suspect]
     Active Substance: DICLOFENAC SODIUM
     Dosage: UNK
     Route: 065
  60. DOSULEPIN HYDROCHLORIDE [Suspect]
     Active Substance: DOTHIEPIN HYDROCHLORIDE
     Indication: Product used for unknown indication
     Dosage: UNK, ENDOTRACHEOPULMONARY INSTILLATION, POWDER FOR SOLUTION
  61. DOSULEPIN HYDROCHLORIDE [Suspect]
     Active Substance: DOTHIEPIN HYDROCHLORIDE
     Dosage: UNK (ORAL LIQUID)
  62. IBUPROFEN [Suspect]
     Active Substance: IBUPROFEN
     Indication: Product used for unknown indication
     Dosage: UNK, ENDOTRACHEOPULMONARY INSTILLATION, POWDER FOR SOLUTION
  63. IBUPROFEN [Suspect]
     Active Substance: IBUPROFEN
     Indication: Product used for unknown indication
     Dosage: UNK, LIQUID
  64. IBUPROFEN [Suspect]
     Active Substance: IBUPROFEN
     Indication: Product used for unknown indication
     Dosage: UNK (ENDOTRACHEOPULMONARY INSTILLATION)
  65. IBUPROFEN [Suspect]
     Active Substance: IBUPROFEN
     Dosage: UNK, ORAL LIQUID
  66. IBUPROFEN [Suspect]
     Active Substance: IBUPROFEN
     Dosage: UNK, (ORAL LIQUID)
  67. TRAZODONE HYDROCHLORIDE [Suspect]
     Active Substance: TRAZODONE HYDROCHLORIDE
     Indication: Product used for unknown indication
     Dosage: UNK, ENDOTRACHEOPULMONARY INSTILLATION, POWDER FOR SOLUTION
  68. TRAZODONE HYDROCHLORIDE [Suspect]
     Active Substance: TRAZODONE HYDROCHLORIDE
     Indication: Product used for unknown indication
     Dosage: UNK, LIQUID
  69. TRAZODONE HYDROCHLORIDE [Suspect]
     Active Substance: TRAZODONE HYDROCHLORIDE
     Dosage: UNK
     Route: 065
  70. TRAZODONE HYDROCHLORIDE [Suspect]
     Active Substance: TRAZODONE HYDROCHLORIDE
     Dosage: UNK
     Route: 065
  71. TRAZODONE HYDROCHLORIDE [Suspect]
     Active Substance: TRAZODONE HYDROCHLORIDE
     Dosage: UNK
     Route: 065
  72. TRAZODONE HYDROCHLORIDE [Suspect]
     Active Substance: TRAZODONE HYDROCHLORIDE
     Dosage: UNK
     Route: 065
  73. TRAZODONE HYDROCHLORIDE [Suspect]
     Active Substance: TRAZODONE HYDROCHLORIDE
     Dosage: UNK
     Route: 065
  74. TRAZODONE HYDROCHLORIDE [Suspect]
     Active Substance: TRAZODONE HYDROCHLORIDE
     Dosage: UNK
     Route: 065
  75. TRAZODONE HYDROCHLORIDE [Suspect]
     Active Substance: TRAZODONE HYDROCHLORIDE
     Dosage: UNK
  76. TRAZODONE HYDROCHLORIDE [Suspect]
     Active Substance: TRAZODONE HYDROCHLORIDE
     Dosage: UNK
  77. TRAZODONE HYDROCHLORIDE [Suspect]
     Active Substance: TRAZODONE HYDROCHLORIDE
     Dosage: UNK
  78. TRAZODONE HYDROCHLORIDE [Suspect]
     Active Substance: TRAZODONE HYDROCHLORIDE
     Dosage: UNK
  79. TRAZODONE HYDROCHLORIDE [Suspect]
     Active Substance: TRAZODONE HYDROCHLORIDE
     Dosage: UNK
  80. TRAZODONE HYDROCHLORIDE [Suspect]
     Active Substance: TRAZODONE HYDROCHLORIDE
     Dosage: UNK
  81. TRAZODONE HYDROCHLORIDE [Suspect]
     Active Substance: TRAZODONE HYDROCHLORIDE
     Dosage: UNK, QD, ORAL LIQUID
  82. PYRIDOXINE HYDROCHLORIDE [Suspect]
     Active Substance: PYRIDOXINE HYDROCHLORIDE
     Indication: Product used for unknown indication
     Dosage: UNK
     Route: 065
  83. PYRIDOXINE HYDROCHLORIDE [Suspect]
     Active Substance: PYRIDOXINE HYDROCHLORIDE
     Indication: Product used for unknown indication
     Dosage: UNK
     Route: 065
  84. PYRIDOXINE HYDROCHLORIDE [Suspect]
     Active Substance: PYRIDOXINE HYDROCHLORIDE
     Dosage: UNK
  85. PYRIDOXINE HYDROCHLORIDE [Suspect]
     Active Substance: PYRIDOXINE HYDROCHLORIDE
     Dosage: UNK
  86. PYRIDOXINE HYDROCHLORIDE [Suspect]
     Active Substance: PYRIDOXINE HYDROCHLORIDE
     Dosage: UNK
  87. PYRIDOXINE HYDROCHLORIDE [Suspect]
     Active Substance: PYRIDOXINE HYDROCHLORIDE
     Dosage: UNK
  88. PYRIDOXINE HYDROCHLORIDE [Suspect]
     Active Substance: PYRIDOXINE HYDROCHLORIDE
     Dosage: UNK
  89. PYRIDOXINE HYDROCHLORIDE [Suspect]
     Active Substance: PYRIDOXINE HYDROCHLORIDE
     Dosage: UNK
  90. PYRIDOXINE HYDROCHLORIDE [Suspect]
     Active Substance: PYRIDOXINE HYDROCHLORIDE
     Dosage: UNK
  91. PYRIDOXINE HYDROCHLORIDE [Suspect]
     Active Substance: PYRIDOXINE HYDROCHLORIDE
     Dosage: UNK
  92. PYRIDOXINE HYDROCHLORIDE [Suspect]
     Active Substance: PYRIDOXINE HYDROCHLORIDE
     Dosage: UNK
  93. PYRIDOXINE HYDROCHLORIDE [Suspect]
     Active Substance: PYRIDOXINE HYDROCHLORIDE
     Dosage: UNK
  94. THIAMINE HYDROCHLORIDE [Suspect]
     Active Substance: THIAMINE HYDROCHLORIDE
     Indication: Product used for unknown indication
     Dosage: UNK
     Route: 065
  95. THIAMINE HYDROCHLORIDE [Suspect]
     Active Substance: THIAMINE HYDROCHLORIDE
     Indication: Product used for unknown indication
     Dosage: UNK
     Route: 065
  96. THIAMINE HYDROCHLORIDE [Suspect]
     Active Substance: THIAMINE HYDROCHLORIDE
     Dosage: UNK, ORAL LIQUID
  97. THIAMINE HYDROCHLORIDE [Suspect]
     Active Substance: THIAMINE HYDROCHLORIDE
  98. THIAMINE HYDROCHLORIDE [Suspect]
     Active Substance: THIAMINE HYDROCHLORIDE
     Dosage: UNK
  99. THIAMINE HYDROCHLORIDE [Suspect]
     Active Substance: THIAMINE HYDROCHLORIDE
     Dosage: UNK
  100. THIAMINE HYDROCHLORIDE [Suspect]
     Active Substance: THIAMINE HYDROCHLORIDE
     Dosage: UNK
  101. THIAMINE HYDROCHLORIDE [Suspect]
     Active Substance: THIAMINE HYDROCHLORIDE
     Dosage: UNK
  102. THIAMINE HYDROCHLORIDE [Suspect]
     Active Substance: THIAMINE HYDROCHLORIDE
     Dosage: UNK
  103. THIAMINE HYDROCHLORIDE [Suspect]
     Active Substance: THIAMINE HYDROCHLORIDE
     Dosage: UNK
  104. THIAMINE HYDROCHLORIDE [Suspect]
     Active Substance: THIAMINE HYDROCHLORIDE
     Dosage: UNK
  105. THIAMINE HYDROCHLORIDE [Suspect]
     Active Substance: THIAMINE HYDROCHLORIDE
     Dosage: UNK
  106. THIAMINE HYDROCHLORIDE [Suspect]
     Active Substance: THIAMINE HYDROCHLORIDE
  107. ACETAMINOPHEN [Suspect]
     Active Substance: ACETAMINOPHEN
     Indication: Product used for unknown indication
     Dosage: UNKUNK, ENDOTRACHEOPULMONARY INSTILLATION,POWDER AND SOLVENT FOR SOLUTION
  108. ACETAMINOPHEN [Suspect]
     Active Substance: ACETAMINOPHEN
     Indication: Product used for unknown indication
     Dosage: UNK (ORAL SUSPENSION)
     Route: 065
  109. ACETAMINOPHEN [Suspect]
     Active Substance: ACETAMINOPHEN
     Indication: Product used for unknown indication
     Dosage: UNK (ORAL SUSPENSION)
     Route: 065
  110. ACETAMINOPHEN [Suspect]
     Active Substance: ACETAMINOPHEN
     Dosage: UNK (ORAL SUSPENSION)
     Route: 065
  111. ACETAMINOPHEN [Suspect]
     Active Substance: ACETAMINOPHEN
     Dosage: UNK (ORAL SUSPENSION)
     Route: 065
  112. ACETAMINOPHEN [Suspect]
     Active Substance: ACETAMINOPHEN
     Dosage: UNK (ORAL SUSPENSION)
     Route: 065
  113. ACETAMINOPHEN [Suspect]
     Active Substance: ACETAMINOPHEN
     Dosage: UNK (ORAL SUSPENSION)
     Route: 065
  114. ACETAMINOPHEN [Suspect]
     Active Substance: ACETAMINOPHEN
     Dosage: UNK (ORAL SUSPENSION)
     Route: 065
  115. ACETAMINOPHEN [Suspect]
     Active Substance: ACETAMINOPHEN
     Dosage: UNK (ORAL SUSPENSION)
     Route: 065
  116. ACETAMINOPHEN [Suspect]
     Active Substance: ACETAMINOPHEN
     Dosage: UNK (ORAL SUSPENSION)
     Route: 065
  117. ACETAMINOPHEN [Suspect]
     Active Substance: ACETAMINOPHEN
     Dosage: UNK (ORAL SUSPENSION)
     Route: 065
  118. ACETAMINOPHEN [Suspect]
     Active Substance: ACETAMINOPHEN
     Dosage: UNK (ORAL SUSPENSION)
     Route: 065
  119. ACETAMINOPHEN [Suspect]
     Active Substance: ACETAMINOPHEN
     Dosage: UNK (ORAL SUSPENSION)
     Route: 065
  120. ACETAMINOPHEN [Suspect]
     Active Substance: ACETAMINOPHEN
     Dosage: UNK (ORAL SUSPENSION)
     Route: 065
  121. ACETAMINOPHEN [Suspect]
     Active Substance: ACETAMINOPHEN
     Dosage: UNK (ORAL SUSPENSION)
     Route: 065
  122. ACETAMINOPHEN [Suspect]
     Active Substance: ACETAMINOPHEN
     Dosage: UNK (ORAL LIQUID) (ORAL SUSPENSION)
     Route: 065
  123. ACETAMINOPHEN [Suspect]
     Active Substance: ACETAMINOPHEN
     Dosage: UNK (ORAL LIQUID) (ORAL SUSPENSION)
     Route: 065
  124. ACETAMINOPHEN [Suspect]
     Active Substance: ACETAMINOPHEN
     Dosage: UNK (ORAL SUSPENSION)
     Route: 065
  125. ACETAMINOPHEN [Suspect]
     Active Substance: ACETAMINOPHEN
     Dosage: UNK (ORAL LIQUID) (ORAL SUSPENSION)
     Route: 065
  126. ACETAMINOPHEN [Suspect]
     Active Substance: ACETAMINOPHEN
     Dosage: UNK (ORAL LIQUID) (ORAL SUSPENSION)
     Route: 065
  127. ACETAMINOPHEN [Suspect]
     Active Substance: ACETAMINOPHEN
     Dosage: UNK (ORAL SUSPENSION)
     Route: 065
  128. ACETAMINOPHEN [Suspect]
     Active Substance: ACETAMINOPHEN
     Dosage: UNK (ORAL SUSPENSION)
     Route: 065
  129. ACETAMINOPHEN [Suspect]
     Active Substance: ACETAMINOPHEN
     Dosage: UNK (ORAL SUSPENSION)
     Route: 065
  130. ACETAMINOPHEN [Suspect]
     Active Substance: ACETAMINOPHEN
     Dosage: UNK (ORAL SUSPENSION)
     Route: 065
  131. ACETAMINOPHEN [Suspect]
     Active Substance: ACETAMINOPHEN
     Dosage: UNK (ORAL SUSPENSION) (ORAL LIQUID)
     Route: 065
  132. ACETAMINOPHEN [Suspect]
     Active Substance: ACETAMINOPHEN
     Dosage: UNK (ORAL SUSPENSION) (ORAL LIQUID)
     Route: 065
  133. ACETAMINOPHEN [Suspect]
     Active Substance: ACETAMINOPHEN
     Dosage: UNK (ORAL SUSPENSION)
     Route: 065
  134. ACETAMINOPHEN [Suspect]
     Active Substance: ACETAMINOPHEN
     Dosage: UNK (ORAL SUSPENSION)
     Route: 065
  135. ACETAMINOPHEN [Suspect]
     Active Substance: ACETAMINOPHEN
     Dosage: UNK (ORAL SUSPENSION)
     Route: 065
  136. ACETAMINOPHEN [Suspect]
     Active Substance: ACETAMINOPHEN
     Dosage: UNK, (ORAL SUSPENSION)
     Route: 065
  137. ACETAMINOPHEN [Suspect]
     Active Substance: ACETAMINOPHEN
     Dosage: UNK,(ORAL SUSPENSION)
     Route: 065
  138. ACETAMINOPHEN [Suspect]
     Active Substance: ACETAMINOPHEN
     Dosage: UNK (ORAL SUSPENSION)
  139. ACETAMINOPHEN [Suspect]
     Active Substance: ACETAMINOPHEN
     Dosage: UNK (ORAL SUSPENSION)
  140. ACETAMINOPHEN [Suspect]
     Active Substance: ACETAMINOPHEN
     Dosage: UNK (ORAL SUSPENSION)
  141. PROTHIADEN [Suspect]
     Active Substance: DOTHIEPIN HYDROCHLORIDE
     Indication: Product used for unknown indication
     Dosage: UNK, ENDOTRACHEOPULMONARY INSTILLATION, POWDER FOR SOLUTION
  142. PROTHIADEN [Suspect]
     Active Substance: DOTHIEPIN HYDROCHLORIDE
     Indication: Product used for unknown indication
     Dosage: UNK, ENDOTRACHEOPULMONARY INSTILLATION, POWDER FOR SOLUTION
  143. PROTHIADEN [Suspect]
     Active Substance: DOTHIEPIN HYDROCHLORIDE
     Indication: Product used for unknown indication
     Dosage: UNK, ENDOTRACHEOPULMONARY INSTILLATION, POWDER FOR SOLUTION
  144. PROTHIADEN [Suspect]
     Active Substance: DOTHIEPIN HYDROCHLORIDE
     Dosage: UNK, ENDOTRACHEOPULMONARY INSTILLATION, POWDER FOR SOLUTION
  145. PROTHIADEN [Suspect]
     Active Substance: DOTHIEPIN HYDROCHLORIDE
     Dosage: UNK, POWDER AND SOLVENT FOR SOLUTION
  146. PROTHIADEN [Suspect]
     Active Substance: DOTHIEPIN HYDROCHLORIDE
     Dosage: UNK
     Route: 065
  147. PROTHIADEN [Suspect]
     Active Substance: DOTHIEPIN HYDROCHLORIDE
     Dosage: UNK
     Route: 065
  148. PROTHIADEN [Suspect]
     Active Substance: DOTHIEPIN HYDROCHLORIDE
     Dosage: UNK
     Route: 065
  149. PROTHIADEN [Suspect]
     Active Substance: DOTHIEPIN HYDROCHLORIDE
     Dosage: UNK
     Route: 065
  150. PROTHIADEN [Suspect]
     Active Substance: DOTHIEPIN HYDROCHLORIDE
     Dosage: UNK
     Route: 065
  151. PROTHIADEN [Suspect]
     Active Substance: DOTHIEPIN HYDROCHLORIDE
     Dosage: ORAL LIQUID , ENDOTRACHEOPULMONARY INSTILLATION, POWDER AND SOLVENT
     Route: 065
  152. PROTHIADEN [Suspect]
     Active Substance: DOTHIEPIN HYDROCHLORIDE
     Dosage: UNK
     Route: 065
  153. PROTHIADEN [Suspect]
     Active Substance: DOTHIEPIN HYDROCHLORIDE
     Dosage: UNK
     Route: 065
  154. PROTHIADEN [Suspect]
     Active Substance: DOTHIEPIN HYDROCHLORIDE
     Dosage: UNK
     Route: 065
  155. PROTHIADEN [Suspect]
     Active Substance: DOTHIEPIN HYDROCHLORIDE
     Dosage: UNK, ENDOTRACHEOPULMONARY INSTILLATION, SOLUTION; (DOTHIEPIN HYDROCHLORIDE
  156. PROTHIADEN [Suspect]
     Active Substance: DOTHIEPIN HYDROCHLORIDE
     Dosage: UNK
     Route: 065
  157. PROTHIADEN [Suspect]
     Active Substance: DOTHIEPIN HYDROCHLORIDE
     Dosage: UNK
     Route: 065
  158. PROTHIADEN [Suspect]
     Active Substance: DOTHIEPIN HYDROCHLORIDE
     Dosage: POWDER AND SOLVENT FOR SOLUTION
     Route: 065
  159. PROTHIADEN [Suspect]
     Active Substance: DOTHIEPIN HYDROCHLORIDE
     Dosage: (ENDOTRACHEOPULMONARY INSTILLATION, SOLUTION)
     Route: 065
  160. PROTHIADEN [Suspect]
     Active Substance: DOTHIEPIN HYDROCHLORIDE
     Dosage: UNK (ORAL LIQUID)
  161. PROTHIADEN [Suspect]
     Active Substance: DOTHIEPIN HYDROCHLORIDE
     Dosage: (ENDOTRACHEOPULMONARY INSTILLATION, SOLUTION)
  162. TOPIRAMATE [Suspect]
     Active Substance: TOPIRAMATE
     Indication: Product used for unknown indication
     Dosage: UNK, ENDOTRACHEOPULMONARY INSTILLATION, POWDER FOR SOLUTION
  163. TOPIRAMATE [Suspect]
     Active Substance: TOPIRAMATE
     Indication: Product used for unknown indication
     Dosage: UNK
     Route: 065
  164. TOPIRAMATE [Suspect]
     Active Substance: TOPIRAMATE
     Dosage: UNK
     Route: 065
  165. TOPIRAMATE [Suspect]
     Active Substance: TOPIRAMATE
     Dosage: UNK
     Route: 065
  166. TOPIRAMATE [Suspect]
     Active Substance: TOPIRAMATE
     Dosage: UNK
     Route: 065
  167. TOPIRAMATE [Suspect]
     Active Substance: TOPIRAMATE
     Dosage: UNK
     Route: 065
  168. TOPIRAMATE [Suspect]
     Active Substance: TOPIRAMATE
     Dosage: UNK
     Route: 065
  169. TOPIRAMATE [Suspect]
     Active Substance: TOPIRAMATE
     Dosage: UNK
     Route: 065
  170. TOPIRAMATE [Suspect]
     Active Substance: TOPIRAMATE
     Dosage: UNK
     Route: 065
  171. TOPIRAMATE [Suspect]
     Active Substance: TOPIRAMATE
     Dosage: UNK
     Route: 065
  172. TOPIRAMATE [Suspect]
     Active Substance: TOPIRAMATE
     Dosage: UNK
     Route: 065
  173. TOPIRAMATE [Suspect]
     Active Substance: TOPIRAMATE
     Dosage: UNK
     Route: 065
  174. TOPIRAMATE [Suspect]
     Active Substance: TOPIRAMATE
     Dosage: UNK
     Route: 065
  175. TOPIRAMATE [Suspect]
     Active Substance: TOPIRAMATE
     Dosage: UNK
  176. TOPIRAMATE [Suspect]
     Active Substance: TOPIRAMATE
     Dosage: UNK
  177. TOPIRAMATE [Suspect]
     Active Substance: TOPIRAMATE
     Dosage: UNK
  178. TOPIRAMATE [Suspect]
     Active Substance: TOPIRAMATE
     Dosage: UNK
  179. TOPIRAMATE [Suspect]
     Active Substance: TOPIRAMATE
     Dosage: UNK
  180. TOPIRAMATE [Suspect]
     Active Substance: TOPIRAMATE
     Dosage: UNK
  181. TOPIRAMATE [Suspect]
     Active Substance: TOPIRAMATE
     Dosage: UNK
  182. TOPIRAMATE [Suspect]
     Active Substance: TOPIRAMATE
     Dosage: UNK, POWDER AND SOLVENT FOR SOLUTION FOR INJECTION
  183. TOPIRAMATE [Suspect]
     Active Substance: TOPIRAMATE
     Dosage: UNK
  184. TOPIRAMATE [Suspect]
     Active Substance: TOPIRAMATE
     Dosage: UNK
  185. TOPIRAMATE [Suspect]
     Active Substance: TOPIRAMATE
     Dosage: UNK
  186. TOPIRAMATE [Suspect]
     Active Substance: TOPIRAMATE
     Dosage: UNK ((ENDOTRACHEOPULMONARY INSTILLATION, POWDER AND SOLVENT FOR SOLUTION)
  187. TOPIRAMATE [Suspect]
     Active Substance: TOPIRAMATE
     Dosage: UNK
  188. TRAZODONE HYDROCHLORIDE [Suspect]
     Active Substance: TRAZODONE HYDROCHLORIDE
     Indication: Product used for unknown indication
     Dosage: UNK
     Route: 065
  189. TRAZODONE HYDROCHLORIDE [Suspect]
     Active Substance: TRAZODONE HYDROCHLORIDE
     Indication: Product used for unknown indication
     Dosage: UNK, LIQUID
  190. TRAZODONE HYDROCHLORIDE [Suspect]
     Active Substance: TRAZODONE HYDROCHLORIDE
     Indication: Product used for unknown indication
     Dosage: UNK, LIQUID
  191. TRAZODONE HYDROCHLORIDE [Suspect]
     Active Substance: TRAZODONE HYDROCHLORIDE
     Dosage: UNK, LIQUID
  192. TRAZODONE HYDROCHLORIDE [Suspect]
     Active Substance: TRAZODONE HYDROCHLORIDE
     Dosage: UNK
     Route: 065
  193. TRAZODONE HYDROCHLORIDE [Suspect]
     Active Substance: TRAZODONE HYDROCHLORIDE
     Dosage: UNK
     Route: 065
  194. TRAZODONE HYDROCHLORIDE [Suspect]
     Active Substance: TRAZODONE HYDROCHLORIDE
     Dosage: UNK
     Route: 065
  195. TRAZODONE HYDROCHLORIDE [Suspect]
     Active Substance: TRAZODONE HYDROCHLORIDE
     Dosage: UNK
     Route: 065
  196. TRAZODONE HYDROCHLORIDE [Suspect]
     Active Substance: TRAZODONE HYDROCHLORIDE
     Dosage: UNK
     Route: 065
  197. TRAZODONE HYDROCHLORIDE [Suspect]
     Active Substance: TRAZODONE HYDROCHLORIDE
     Dosage: UNK
     Route: 065
  198. TRAZODONE HYDROCHLORIDE [Suspect]
     Active Substance: TRAZODONE HYDROCHLORIDE
     Dosage: UNK
     Route: 065
  199. TRAZODONE HYDROCHLORIDE [Suspect]
     Active Substance: TRAZODONE HYDROCHLORIDE
     Dosage: UNK
     Route: 065
  200. TRAZODONE HYDROCHLORIDE [Suspect]
     Active Substance: TRAZODONE HYDROCHLORIDE
     Dosage: UNK
     Route: 065
  201. TRAZODONE HYDROCHLORIDE [Suspect]
     Active Substance: TRAZODONE HYDROCHLORIDE
     Dosage: UNK
     Route: 065
  202. TRAZODONE HYDROCHLORIDE [Suspect]
     Active Substance: TRAZODONE HYDROCHLORIDE
     Dosage: UNK
     Route: 065
  203. TRAZODONE HYDROCHLORIDE [Suspect]
     Active Substance: TRAZODONE HYDROCHLORIDE
     Dosage: UNK, QD (ORAL LIQUID)
     Route: 065
  204. TRAZODONE HYDROCHLORIDE [Suspect]
     Active Substance: TRAZODONE HYDROCHLORIDE
     Dosage: UNK; ORAL LIQUID (ENDOTRACHEOPULMONARY INSTILLATION, POWDER AND SOLVENT FOR SOLUTION)
     Route: 065
  205. TRAZODONE HYDROCHLORIDE [Suspect]
     Active Substance: TRAZODONE HYDROCHLORIDE
     Dosage: UNK
     Route: 065
  206. TRAZODONE HYDROCHLORIDE [Suspect]
     Active Substance: TRAZODONE HYDROCHLORIDE
     Dosage: UNK, QD (ORAL LIQUID)
  207. TRAZODONE HYDROCHLORIDE [Suspect]
     Active Substance: TRAZODONE HYDROCHLORIDE
     Dosage: UNK, QD (ORAL LIQUID)
  208. VALPROATE SODIUM [Suspect]
     Active Substance: VALPROATE SODIUM
     Indication: Product used for unknown indication
     Dosage: UNK
  209. VALPROATE SODIUM [Suspect]
     Active Substance: VALPROATE SODIUM
     Indication: Product used for unknown indication
     Dosage: QD, POWDER AND SOLVENT FOR SOLUTION FOR INJECTION
  210. VALPROIC ACID [Suspect]
     Active Substance: VALPROIC ACID
     Indication: Product used for unknown indication
     Dosage: UNK
     Route: 065
  211. VALPROIC ACID [Suspect]
     Active Substance: VALPROIC ACID
     Dosage: UNK
  212. VALPROIC ACID [Suspect]
     Active Substance: VALPROIC ACID
     Dosage: UNK
     Route: 065
  213. VALPROIC ACID [Suspect]
     Active Substance: VALPROIC ACID
     Dosage: UNK
     Route: 065
  214. VALPROIC ACID [Suspect]
     Active Substance: VALPROIC ACID
     Dosage: UNK
     Route: 065
  215. VALPROIC ACID [Suspect]
     Active Substance: VALPROIC ACID
     Dosage: UNK
     Route: 065
  216. VALPROIC ACID [Suspect]
     Active Substance: VALPROIC ACID
     Dosage: UNK
  217. VALPROIC ACID [Suspect]
     Active Substance: VALPROIC ACID
     Dosage: UNK
     Route: 065
  218. VALPROATE MAGNESIUM [Suspect]
     Active Substance: VALPROATE MAGNESIUM
     Indication: Product used for unknown indication
     Dosage: UNK
     Route: 065
  219. VALPROATE MAGNESIUM [Suspect]
     Active Substance: VALPROATE MAGNESIUM
     Dosage: UNK
     Route: 065
  220. VALPROATE MAGNESIUM [Suspect]
     Active Substance: VALPROATE MAGNESIUM
     Dosage: UNK
     Route: 065
  221. TOPAMAX [Suspect]
     Active Substance: TOPIRAMATE
     Indication: Product used for unknown indication
     Dosage: UNK
     Route: 065
  222. TOPAMAX [Suspect]
     Active Substance: TOPIRAMATE
     Dosage: UNK
  223. TOPAMAX [Suspect]
     Active Substance: TOPIRAMATE
     Dosage: UNK (ENDOTRACHEOPULMONARY INSTILLATION, POWDER FOR SOLUTION)
  224. PYRIDOXINE HYDROCHLORIDE\THIAMINE HYDROCHLORIDE [Suspect]
     Active Substance: PYRIDOXINE HYDROCHLORIDE\THIAMINE HYDROCHLORIDE
     Indication: Product used for unknown indication
     Dosage: UNK
     Route: 065
  225. VITAMIN B [Suspect]
     Active Substance: VITAMIN B
     Indication: Product used for unknown indication
     Dosage: UNK
     Route: 065
  226. BOTOX [Suspect]
     Active Substance: ONABOTULINUMTOXINA
     Indication: Product used for unknown indication
     Dosage: 1 MG, QCY
     Dates: start: 2017, end: 2017
  227. BOTOX [Suspect]
     Active Substance: ONABOTULINUMTOXINA
     Indication: Product used for unknown indication
     Dosage: 1 MG
     Dates: start: 2017, end: 2018
  228. BOTOX [Suspect]
     Active Substance: ONABOTULINUMTOXINA
     Dosage: 1 MG
  229. BOTOX [Suspect]
     Active Substance: ONABOTULINUMTOXINA
     Dosage: 1 MG, QD
     Dates: start: 2018, end: 2018
  230. BOTOX [Suspect]
     Active Substance: ONABOTULINUMTOXINA
     Dosage: 1 MG
  231. BOTOX [Suspect]
     Active Substance: ONABOTULINUMTOXINA
     Dosage: SINGLE CYCLICAL
     Dates: start: 2017, end: 2018
  232. BOTOX [Suspect]
     Active Substance: ONABOTULINUMTOXINA
     Dosage: UNK
  233. DOTHIEPIN HYDROCHLORIDE [Suspect]
     Active Substance: DOTHIEPIN HYDROCHLORIDE
     Indication: Product used for unknown indication
     Dosage: UNK, ENDOTRACHEOPULMONARY INSTILLATION, POWDER AND SOLVENT FOR SOLUTION
     Route: 065
  234. DOTHIEPIN HYDROCHLORIDE [Suspect]
     Active Substance: DOTHIEPIN HYDROCHLORIDE
     Dosage: UNK (ENDOTRACHEOPULMONARY INSTILLATION, POWDER AND SOLVENT FOR SOLUTION)
  235. DICLOFENAC SODIUM [Suspect]
     Active Substance: DICLOFENAC SODIUM
     Indication: Product used for unknown indication
     Dosage: UNK
     Route: 065

REACTIONS (6)
  - Migraine [Unknown]
  - Neck pain [Unknown]
  - Head discomfort [Unknown]
  - Back pain [Unknown]
  - Pain [Unknown]
  - Headache [Unknown]
